FAERS Safety Report 8936267 (Version 1)
Quarter: 2012Q4

REPORT INFORMATION
  Report Type: 
  Country: US (occurrence: US)
  Receive Date: 20121130
  Receipt Date: 20121130
  Transmission Date: 20130627
  Serious: No
  Sender: FDA-Public Use
  Company Number: US-ABBOTT-12P-163-0977995-00

PATIENT
  Age: 63 None
  Sex: Male
  Weight: 113.5 kg

DRUGS (3)
  1. ANDROGEL [Suspect]
     Indication: BLOOD TESTOSTERONE DECREASED
     Dosage: 2 pumps daily
     Route: 061
     Dates: start: 20120423, end: 20120719
  2. ANDROGEL [Suspect]
     Dosage: 4 pumps daily
     Route: 061
     Dates: start: 20120719, end: 20120720
  3. SIMVASTATIN [Concomitant]
     Indication: BLOOD CHOLESTEROL INCREASED

REACTIONS (2)
  - Blood testosterone abnormal [Unknown]
  - Blood pressure increased [Recovered/Resolved with Sequelae]
